FAERS Safety Report 25903242 (Version 4)
Quarter: 2025Q4

REPORT INFORMATION
  Report Type: Spontaneous
  Country: US (occurrence: US)
  Receive Date: 20251009
  Receipt Date: 20251121
  Transmission Date: 20260117
  Serious: Yes (unspecified)
  Sender: LEITERS COMPOUNDING PHARMACY
  Company Number: US-Leiters-2186270

PATIENT
  Age: 80 Year
  Sex: Female

DRUGS (1)
  1. BEVACIZUMAB [Suspect]
     Active Substance: BEVACIZUMAB
     Indication: Macular degeneration
     Dates: start: 20250904, end: 20250904

REACTIONS (1)
  - Endophthalmitis [Not Recovered/Not Resolved]

NARRATIVE: CASE EVENT DATE: 20250920
